FAERS Safety Report 5924900-6 (Version None)
Quarter: 2008Q4

REPORT INFORMATION
  Report Type: 
  Country: None (occurrence: None)
  Receive Date: 20081017
  Receipt Date: 20081017
  Transmission Date: 20090506
  Serious: Yes (Disabling)
  Sender: FDA-Public Use
  Company Number: None

PATIENT
  Sex: Male
  Weight: 97 kg

DRUGS (3)
  1. RITUXIMAB 50MG AND 100MG BIOGEN IDEC INC + GENENTEC [Suspect]
     Indication: NON-HODGKIN'S LYMPHOMA
     Dosage: 780MG ONCE IV DRIP (4 DOSES IN '04, 1DOSE '06)
     Route: 041
     Dates: start: 20040101
  2. RITUXIMAB 50MG AND 100MG BIOGEN IDEC INC + GENENTEC [Suspect]
     Indication: NON-HODGKIN'S LYMPHOMA
     Dosage: 780MG ONCE IV DRIP (4 DOSES IN '04, 1DOSE '06)
     Route: 041
     Dates: start: 20060101
  3. RITUXIMAB 50MG AND 100MG BIOGEN IDEC INC + GENENTEC [Suspect]

REACTIONS (5)
  - ABDOMINAL PAIN UPPER [None]
  - CHEST DISCOMFORT [None]
  - COUGH [None]
  - DYSPNOEA [None]
  - INFUSION RELATED REACTION [None]
